FAERS Safety Report 4705752-9 (Version None)
Quarter: 2005Q2

REPORT INFORMATION
  Report Type: 
  Country: None (occurrence: None)
  Receive Date: 20050629
  Receipt Date: 20050615
  Transmission Date: 20051028
  Serious: Yes (Hospitalization)
  Sender: FDA-Public Use
  Company Number: CA-2005-010208

PATIENT
  Age: 27 Year
  Sex: Female

DRUGS (1)
  1. BETASERON [Suspect]
     Indication: RELAPSING-REMITTING MULTIPLE SCLEROSIS
     Dosage: 8 MIU,EVERY 2D, SUBCUTANEOUS
     Route: 058
     Dates: start: 20040130, end: 20050324

REACTIONS (5)
  - HEPATIC LESION [None]
  - INJECTION SITE ERYTHEMA [None]
  - INJECTION SITE INFLAMMATION [None]
  - INJECTION SITE MASS [None]
  - JAUNDICE HEPATOCELLULAR [None]
